FAERS Safety Report 4489483-9 (Version None)
Quarter: 2004Q4

REPORT INFORMATION
  Report Type: 
  Country: None (occurrence: None)
  Receive Date: 20041101
  Receipt Date: 20041025
  Transmission Date: 20050328
  Serious: Yes (Hospitalization)
  Sender: FDA-Public Use
  Company Number: PHNU2004DE03633

PATIENT
  Age: 48 Year
  Sex: Male

DRUGS (3)
  1. LEPONEX / CLOZARIL (CLOZAPINE) [Suspect]
     Indication: SCHIZOPHRENIA
     Dosage: 75 MG/DAY
     Route: 048
     Dates: start: 19990101, end: 20030227
  2. QUILONUM - SLOW RELEASE [Suspect]
     Dosage: UP TO 1150 MG/DAY
     Route: 048
     Dates: start: 19990101, end: 20030320
  3. SEROXAT ^SMITHKLINE BEECHAM^ [Concomitant]
     Dosage: 40 MG/DAY
     Route: 048
     Dates: start: 19990101

REACTIONS (2)
  - DRUG INTERACTION [None]
  - WEIGHT INCREASED [None]
